FAERS Safety Report 5921208-X (Version None)
Quarter: 2008Q4

REPORT INFORMATION
  Report Type: 
  Country: None (occurrence: None)
  Receive Date: 20081016
  Receipt Date: 20081013
  Transmission Date: 20090506
  Serious: Yes (Hospitalization)
  Sender: FDA-Public Use
  Company Number: TW-ROXANE LABORATORIES, INC.-2008-RO-00122RO

PATIENT
  Age: 15 Month
  Sex: Male

DRUGS (10)
  1. CYCLOPHOSPHAMIDE [Suspect]
     Indication: LANGERHANS' CELL GRANULOMATOSIS
  2. MERCAPTOPURINE [Suspect]
     Indication: LANGERHANS' CELL GRANULOMATOSIS
  3. METHOTREXATE [Suspect]
     Indication: LANGERHANS' CELL GRANULOMATOSIS
  4. METHOTREXATE [Suspect]
     Indication: PROPHYLAXIS AGAINST GRAFT VERSUS HOST DISEASE
  5. PREDNISOLONE [Suspect]
     Indication: LANGERHANS' CELL GRANULOMATOSIS
  6. VINCRISTINE SULFATE [Suspect]
     Indication: LANGERHANS' CELL GRANULOMATOSIS
  7. IMMUNE GLOBULIN INTRAVENOUS (HUMAN) [Suspect]
     Route: 042
  8. ETOPOSIDE [Suspect]
  9. CYCLOSPORINE [Suspect]
     Indication: PROPHYLAXIS AGAINST GRAFT VERSUS HOST DISEASE
     Route: 042
  10. CYCLOSPORINE [Suspect]
     Route: 042

REACTIONS (3)
  - HYPERTENSION [None]
  - NO THERAPEUTIC RESPONSE [None]
  - REVERSIBLE POSTERIOR LEUKOENCEPHALOPATHY SYNDROME [None]
